FAERS Safety Report 15460814 (Version 1)
Quarter: 2018Q4

REPORT INFORMATION
  Report Type: Spontaneous
  Country: DE (occurrence: DE)
  Receive Date: 20181003
  Receipt Date: 20181003
  Transmission Date: 20190204
  Serious: Yes (Hospitalization, Other)
  Sender: FDA-Public Use
  Company Number: DE-TEVA-2018-DE-960780

PATIENT
  Age: 83 Year
  Sex: Female
  Weight: 48 kg

DRUGS (11)
  1. COTRIM FORTE [Suspect]
     Active Substance: SULFAMETHOXAZOLE\TRIMETHOPRIM
     Indication: CYSTITIS NONINFECTIVE
     Dosage: ?
     Route: 048
     Dates: start: 20180811, end: 20180816
  2. GABAPENTIN. [Suspect]
     Active Substance: GABAPENTIN
     Indication: NEURALGIA
     Dosage: 500??
     Route: 048
     Dates: start: 20180730
  3. NAROPIN [Suspect]
     Active Substance: ROPIVACAINE HYDROCHLORIDE
     Indication: PAIN IN EXTREMITY
     Dosage: TRIAM UND NAROPIN 20 INJ 1 X O,5 UND 2MG 10 ML
     Route: 008
     Dates: start: 20180622
  4. ACIDUM FORMICUM AMPULLE [Concomitant]
     Dosage: 1 AMPULLE PRO TAG
     Route: 030
     Dates: start: 20180625
  5. IOD [IODINE] [Suspect]
     Active Substance: IODINE
     Route: 065
  6. LEVETIRACETAM. [Suspect]
     Active Substance: LEVETIRACETAM
     Indication: EPILEPSY
     Dosage: 500-0-500?AB DEM 29.08. AUSSCHLEICHEN VON KEPPRA
     Route: 048
     Dates: start: 20180816
  7. LORAZEPAM. [Suspect]
     Active Substance: LORAZEPAM
     Route: 065
  8. TRIAM (TRIAMCINOLONE) [Suspect]
     Active Substance: TRIAMCINOLONE
     Indication: SCIATICA
     Dosage: TRIAM UND NAROPIN 20 INJ 1 X O,5 UND 2MG 10 ML
     Route: 008
     Dates: start: 20180622
  9. NOVALGIN (METAMIZOLE SODIUM) [Suspect]
     Active Substance: METAMIZOLE SODIUM
     Indication: SCIATICA
     Dosage: NICHT IN H?HE BEKANNT
     Route: 042
     Dates: start: 20180628
  10. LEVETIRACETAM. [Suspect]
     Active Substance: LEVETIRACETAM
     Indication: CEREBRAL HAEMORRHAGE
     Dosage: 1000 MILLIGRAM DAILY; 500-0-500
     Route: 042
     Dates: start: 20180702, end: 20180709
  11. ACIDUM FORMICUM AMPULLE [Concomitant]
     Indication: SCIATICA
     Dosage: 1 DOSAGE FORMS DAILY; 1 AMPULLE PRO TAG
     Route: 014
     Dates: start: 20180625

REACTIONS (8)
  - Cerebral haemorrhage [Recovered/Resolved with Sequelae]
  - Loss of consciousness [Recovering/Resolving]
  - Platelet count decreased [Unknown]
  - Dysphagia [Recovering/Resolving]
  - Somnolence [Unknown]
  - Gamma-glutamyltransferase increased [Unknown]
  - Epilepsy [Unknown]
  - Sopor [Recovered/Resolved with Sequelae]

NARRATIVE: CASE EVENT DATE: 20180622
